FAERS Safety Report 22957522 (Version 3)
Quarter: 2023Q4

REPORT INFORMATION
  Report Type: Report from Study
  Country: US (occurrence: US)
  Receive Date: 20230919
  Receipt Date: 20231016
  Transmission Date: 20240110
  Serious: Yes (Hospitalization)
  Sender: FDA-Public Use
  Company Number: US-TAKEDA-2023TUS089275

PATIENT
  Age: 55 Year
  Sex: Female
  Weight: 76 kg

DRUGS (1)
  1. VON WILLEBRAND FACTOR (RECOMBINANT) [Suspect]
     Active Substance: VON WILLEBRAND FACTOR (RECOMBINANT)
     Indication: Von Willebrand^s disease
     Dosage: 4000 INTERNATIONAL UNIT
     Route: 065

REACTIONS (1)
  - Aortic valve stenosis [Not Recovered/Not Resolved]

NARRATIVE: CASE EVENT DATE: 20140101
